FAERS Safety Report 9307779 (Version 1)
Quarter: 2013Q2

REPORT INFORMATION
  Report Type: Spontaneous
  Country: AU (occurrence: AU)
  Receive Date: 20130524
  Receipt Date: 20130524
  Transmission Date: 20140414
  Serious: Yes (Hospitalization, Other)
  Sender: FDA-Public Use
  Company Number: AU-PFIZER INC-2013155961

PATIENT
  Age: 70 Year
  Sex: Male

DRUGS (3)
  1. RAMIPRIL [Suspect]
     Dosage: UNK
     Route: 065
  2. BLINDED THERAPY [Concomitant]
     Indication: CHRONIC OBSTRUCTIVE PULMONARY DISEASE
     Dosage: UNK
     Dates: start: 20130318
  3. DILANTIN [Concomitant]
     Dosage: UNK

REACTIONS (5)
  - Fall [Recovering/Resolving]
  - Laceration [Recovering/Resolving]
  - Laceration [Recovering/Resolving]
  - Epilepsy [Recovering/Resolving]
  - Hypertension [Recovering/Resolving]
